FAERS Safety Report 15257392 (Version 7)
Quarter: 2019Q1

REPORT INFORMATION
  Report Type: Spontaneous
  Country: US (occurrence: US)
  Receive Date: 20180808
  Receipt Date: 20190329
  Transmission Date: 20190417
  Serious: Yes (Hospitalization)
  Sender: FDA-Public Use
  Company Number: US-VIFOR (INTERNATIONAL) INC.-VIT-2018-07642

PATIENT
  Age: 73 Year
  Sex: Female

DRUGS (30)
  1. VELTASSA [Suspect]
     Active Substance: PATIROMER
     Indication: HYPERKALAEMIA
     Route: 048
     Dates: start: 201803
  2. CITALOPRAM HYDROBROMIDE. [Concomitant]
     Active Substance: CITALOPRAM HYDROBROMIDE
  3. B COMPLEX 50 [Concomitant]
  4. SODIUM BICARBONATE. [Concomitant]
     Active Substance: SODIUM BICARBONATE
  5. AMLODIPINE BESY-BENAZEPRIL HCL [Concomitant]
     Active Substance: AMLODIPINE BESYLATE\BENAZEPRIL HYDROCHLORIDE
  6. TEGRETOL [Concomitant]
     Active Substance: CARBAMAZEPINE
  7. FISH OIL CONCENTRATE [Concomitant]
     Active Substance: FISH OIL
  8. LIPITOR [Concomitant]
     Active Substance: ATORVASTATIN CALCIUM
  9. MACROBID [Concomitant]
     Active Substance: NITROFURANTOIN\NITROFURANTOIN MONOHYDRATE
  10. FUROSEMIDE. [Concomitant]
     Active Substance: FUROSEMIDE
  11. RANITIDINE HCL [Concomitant]
     Active Substance: RANITIDINE HYDROCHLORIDE
  12. TIZANIDINE HCL [Concomitant]
     Active Substance: TIZANIDINE HYDROCHLORIDE
  13. ACIDOPHILUS [Concomitant]
     Active Substance: LACTOBACILLUS ACIDOPHILUS
  14. LEVO-T [Concomitant]
     Active Substance: LEVOTHYROXINE SODIUM
  15. OPIUM. [Concomitant]
     Active Substance: OPIUM
  16. FEXOFENADINE HCL [Concomitant]
     Active Substance: FEXOFENADINE HYDROCHLORIDE
  17. LISINOPRIL. [Concomitant]
     Active Substance: LISINOPRIL
  18. PERCOCET [Concomitant]
     Active Substance: ACETAMINOPHEN\OXYCODONE HYDROCHLORIDE
  19. LOMOTIL [Concomitant]
     Active Substance: ATROPINE SULFATE\DIPHENOXYLATE HYDROCHLORIDE
  20. CLONIDINE HYDROCHLORIDE. [Concomitant]
     Active Substance: CLONIDINE HYDROCHLORIDE
  21. VITAMIN D3 [Concomitant]
     Active Substance: CHOLECALCIFEROL
  22. VELTASSA [Suspect]
     Active Substance: PATIROMER
     Route: 048
     Dates: start: 20180413
  23. PREMARIN [Concomitant]
     Active Substance: ESTROGENS, CONJUGATED
  24. TRICOR [Concomitant]
     Active Substance: FENOFIBRATE
  25. CITRACAL PLUS [Concomitant]
     Active Substance: CALCIUM\MAGNESIUM\VITAMIN D\ZINC
  26. ASPIRIN. [Concomitant]
     Active Substance: ASPIRIN
  27. NOVOLOG [Concomitant]
     Active Substance: INSULIN ASPART
  28. DEXILANT [Concomitant]
     Active Substance: DEXLANSOPRAZOLE
  29. GLUCOSAMINE 1500 COMPLEX [Concomitant]
  30. PROCHLORPERAZINE MALEATE. [Concomitant]
     Active Substance: PROCHLORPERAZINE MALEATE

REACTIONS (7)
  - Constipation [Unknown]
  - Blood potassium increased [Unknown]
  - Malaise [Unknown]
  - Blood pressure abnormal [Unknown]
  - Hospitalisation [Not Recovered/Not Resolved]
  - Urinary tract infection [Unknown]
  - Nausea [Not Recovered/Not Resolved]

NARRATIVE: CASE EVENT DATE: 2018
